FAERS Safety Report 5008932-0 (Version None)
Quarter: 2006Q2

REPORT INFORMATION
  Report Type: 
  Country: None (occurrence: None)
  Receive Date: 20060518
  Receipt Date: 20060505
  Transmission Date: 20061013
  Serious: Yes (Hospitalization, Other)
  Sender: FDA-Public Use
  Company Number: 028-C5013-06050258

PATIENT
  Age: 68 Year
  Sex: Male

DRUGS (1)
  1. LENALIDOMIDE (CAPSULES) [Suspect]
     Indication: MULTIPLE MYELOMA
     Dosage: 25 MG, OD, ORAL
     Route: 048
     Dates: start: 20060421, end: 20060504

REACTIONS (4)
  - INCORRECT DOSE ADMINISTERED [None]
  - MEDICATION ERROR [None]
  - NEUTROPENIA [None]
  - THROMBOCYTOPENIA [None]
